FAERS Safety Report 24814769 (Version 1)
Quarter: 2025Q1

REPORT INFORMATION
  Report Type: Other
  Country: CA (occurrence: CA)
  Receive Date: 20250107
  Receipt Date: 20250107
  Transmission Date: 20250409
  Serious: Yes (Life-Threatening, Hospitalization, Other)
  Sender: OMNIVIUM PHARMACEUTICALS LLC
  Company Number: CA-Omnivium Pharmaceuticals LLC-2168557

PATIENT
  Age: 23 Year
  Sex: Female

DRUGS (8)
  1. NUMBRINO [Suspect]
     Active Substance: COCAINE HYDROCHLORIDE
     Indication: Product used for unknown indication
  2. DEXTROMETHORPHAN HYDROBROMIDE [Suspect]
     Active Substance: DEXTROMETHORPHAN HYDROBROMIDE
  3. HYDROMORPHONE HYDROCHLORIDE [Suspect]
     Active Substance: HYDROMORPHONE HYDROCHLORIDE
  4. MORPHINE SULFATE [Suspect]
     Active Substance: MORPHINE SULFATE
  5. OXYCODONE [Suspect]
     Active Substance: OXYCODONE
  6. BENZOYLECGONINE [Suspect]
     Active Substance: BENZOYLECGONINE
  7. ZOPICLONE [Suspect]
     Active Substance: ZOPICLONE
  8. TRAZODONE [Suspect]
     Active Substance: TRAZODONE HYDROCHLORIDE

REACTIONS (25)
  - Coma [Recovered/Resolved]
  - Eye movement disorder [Recovered/Resolved]
  - Toxicity to various agents [Recovered/Resolved]
  - Mononeuropathy [Recovered/Resolved]
  - Muscle spasticity [Recovered/Resolved]
  - Hypertransaminasaemia [Recovered/Resolved]
  - Urinary casts [Recovered/Resolved]
  - Myoglobinuria [Recovered/Resolved]
  - Sinus tachycardia [Recovered/Resolved]
  - Aphasia [Recovered/Resolved]
  - Cognitive disorder [Recovered/Resolved]
  - Cough [Recovered/Resolved]
  - Asthenia [Recovered/Resolved]
  - Somnolence [Recovered/Resolved]
  - Stress cardiomyopathy [Recovered/Resolved]
  - Lumbosacral plexus injury [Recovered/Resolved]
  - Encephalitis brain stem [Recovered/Resolved]
  - Hepatitis [Recovered/Resolved]
  - Rhabdomyolysis [Recovered/Resolved]
  - Toxic encephalopathy [Recovered/Resolved]
  - Cerebral haemorrhage [Recovered/Resolved]
  - Ventricular hypokinesia [Recovered/Resolved]
  - Unresponsive to stimuli [Recovered/Resolved]
  - Acute kidney injury [Recovered/Resolved]
  - Decerebrate posture [Recovered/Resolved]
